FAERS Safety Report 20394918 (Version 1)
Quarter: 2022Q1

REPORT INFORMATION
  Report Type: Report from Study
  Country: FR (occurrence: FR)
  Receive Date: 20220130
  Receipt Date: 20220130
  Transmission Date: 20220423
  Serious: Yes (Other)
  Sender: FDA-Public Use
  Company Number: FR-JAZZ-2018-FR-000789

PATIENT

DRUGS (1)
  1. DEFITELIO [Suspect]
     Active Substance: DEFIBROTIDE SODIUM
     Indication: Venoocclusive disease
     Dosage: 6.25 MG/KG, QID

REACTIONS (5)
  - Ascites [Unknown]
  - Oedema [Unknown]
  - Pain [Unknown]
  - Condition aggravated [Unknown]
  - Off label use [Unknown]
